FAERS Safety Report 23305615 (Version 4)
Quarter: 2024Q1

REPORT INFORMATION
  Report Type: Spontaneous
  Country: US (occurrence: US)
  Receive Date: 20231218
  Receipt Date: 20240319
  Transmission Date: 20240410
  Serious: No
  Sender: FDA-Public Use
  Company Number: US-BRISTOL-MYERS SQUIBB COMPANY-2023-182799

PATIENT
  Age: 77 Year
  Sex: Male

DRUGS (1)
  1. REBLOZYL [Suspect]
     Active Substance: LUSPATERCEPT-AAMT
     Indication: Product used for unknown indication
     Dosage: STRENGTH: 75 MG AND 25 MG; DOSE AND FREQ : ADMINISTER 114MG SUBCUTANEOUSLY EVERY 3 WEEKS. STRENGTH:
     Route: 058

REACTIONS (2)
  - Weight increased [Unknown]
  - Weight decreased [Unknown]
